FAERS Safety Report 5153671-9 (Version None)
Quarter: 2006Q4

REPORT INFORMATION
  Report Type: 
  Country: None (occurrence: None)
  Receive Date: 20061114
  Receipt Date: 20061027
  Transmission Date: 20070319
  Serious: Yes (Death)
  Sender: FDA-Public Use
  Company Number: RENA-11971

PATIENT
  Age: 67 Year
  Sex: Male
  Weight: 53 kg

DRUGS (15)
  1. RENAGEL [Suspect]
     Indication: HYPERPHOSPHATAEMIA
     Dosage: 2.25 G TID PO
     Route: 048
     Dates: start: 20060628
  2. RENAGEL [Suspect]
     Indication: HYPERPHOSPHATAEMIA
     Dosage: 1.5 G TID PO
     Route: 048
     Dates: start: 20050831
  3. RENAGEL [Suspect]
     Indication: HYPERPHOSPHATAEMIA
     Dosage: 2 G TID PO
     Route: 048
     Dates: start: 20050420
  4. RENAGEL [Suspect]
     Indication: HYPERPHOSPHATAEMIA
     Dosage: 1.5 G TID PO
     Route: 048
     Dates: start: 20041222
  5. RENAGEL [Suspect]
     Indication: HYPERPHOSPHATAEMIA
     Dosage: 2.25 G TID PO
     Route: 048
     Dates: start: 20040424, end: 20040816
  6. RENAGEL [Suspect]
     Indication: HYPERPHOSPHATAEMIA
     Dosage: 1.5 G TID PO
     Route: 048
     Dates: start: 20031210
  7. RENAGEL [Suspect]
     Indication: HYPERPHOSPHATAEMIA
     Dosage: 0.75 G TID PO
     Route: 048
     Dates: start: 20030730
  8. ALOSENN [Suspect]
     Indication: CONSTIPATION
     Dosage: 2 G DAILY PO
     Route: 048
     Dates: start: 20031002, end: 20061001
  9. SODIUM PICOSULFATE [Suspect]
     Indication: CONSTIPATION
     Dates: start: 20040319, end: 20061001
  10. ALTAT [Concomitant]
  11. ALLOPURINOL [Concomitant]
  12. CALTAN (PRECIPITATED CALCIUM CARBONATE) [Concomitant]
  13. THYRADIN S [Concomitant]
  14. NORVASC [Concomitant]
  15. OLMETEC (OLMESARTAN MEDOXOMIL) [Concomitant]

REACTIONS (7)
  - COLITIS ISCHAEMIC [None]
  - DISSEMINATED INTRAVASCULAR COAGULATION [None]
  - DIVERTICULUM [None]
  - GASTROINTESTINAL DISORDER [None]
  - INTESTINAL PERFORATION [None]
  - PERITONITIS [None]
  - SHOCK [None]
